FAERS Safety Report 6724542-9 (Version None)
Quarter: 2010Q2

REPORT INFORMATION
  Report Type: 
  Country: None (occurrence: None)
  Receive Date: 20100513
  Receipt Date: 20100505
  Transmission Date: 20101027
  Serious: Yes (Other)
  Sender: FDA-Public Use
  Company Number: US-PFIZER INC-2010047264

PATIENT
  Sex: Female
  Weight: 64.399 kg

DRUGS (24)
  1. CHANTIX [Suspect]
     Indication: SMOKING CESSATION THERAPY
     Dosage: 0.5 MG, 1X/DAY
     Route: 048
     Dates: start: 20100301
  2. ADVAIR DISKUS 100/50 [Concomitant]
     Dosage: UNK
  3. ATENOLOL [Concomitant]
     Dosage: UNK
  4. CYTOMEL [Concomitant]
     Indication: THYROID DISORDER
     Dosage: UNK
  5. DITROPAN [Concomitant]
     Indication: BLADDER DISORDER
     Dosage: UNK
  6. POTASSION [Concomitant]
     Dosage: UNK
  7. PROVENTIL GENTLEHALER [Concomitant]
     Dosage: UNK
  8. ALBUTEROL [Concomitant]
     Dosage: UNK
  9. CLONAZEPAM [Concomitant]
     Dosage: UNK
  10. FOLIC ACID [Concomitant]
     Dosage: UNK
  11. FEMARA [Concomitant]
     Dosage: UNK
  12. METHOTREXATE [Concomitant]
     Dosage: UNK
  13. MESALAMINE [Concomitant]
     Dosage: UNK
  14. LOMOTIL [Concomitant]
     Indication: DIARRHOEA
     Dosage: UNK
  15. COMPAZINE [Concomitant]
     Indication: NAUSEA
     Dosage: UNK
  16. HYDROCODONE [Concomitant]
     Dosage: UNK
  17. OS-CAL D [Concomitant]
     Dosage: UNK
  18. FEXOFENADINE [Concomitant]
     Indication: HYPERSENSITIVITY
     Dosage: UNK
  19. OLOPATADINE [Concomitant]
     Indication: HYPERSENSITIVITY
     Dosage: UNK
  20. PAROXETINE [Concomitant]
     Indication: DEPRESSION
     Dosage: UNK
  21. COMBIPATCH [Concomitant]
     Indication: HORMONE LEVEL ABNORMAL
     Dosage: UNK
  22. MULTI-VITAMINS [Concomitant]
     Dosage: UNK
  23. PRILOSEC [Concomitant]
     Dosage: UNK
  24. AVELOX [Concomitant]
     Dosage: UNK

REACTIONS (16)
  - AGGRESSION [None]
  - AGITATION [None]
  - BIPOLAR I DISORDER [None]
  - BLOOD PRESSURE INCREASED [None]
  - DEPRESSION [None]
  - DYSPNOEA [None]
  - EUPHORIC MOOD [None]
  - GENERALISED OEDEMA [None]
  - HOSTILITY [None]
  - IMPAIRED WORK ABILITY [None]
  - MANIA [None]
  - MEMORY IMPAIRMENT [None]
  - OBSESSIVE-COMPULSIVE DISORDER [None]
  - PALPITATIONS [None]
  - PERSONALITY CHANGE [None]
  - SWELLING FACE [None]
